FAERS Safety Report 12685146 (Version 3)
Quarter: 2017Q2

REPORT INFORMATION
  Report Type: Spontaneous
  Country: US (occurrence: US)
  Receive Date: 20160825
  Receipt Date: 20170501
  Transmission Date: 20170830
  Serious: No
  Sender: FDA-Public Use
  Company Number: US-TEVA-680943USA

PATIENT
  Sex: Female

DRUGS (6)
  1. NEXIUM [Concomitant]
     Active Substance: ESOMEPRAZOLE MAGNESIUM
     Dosage: 40 MILLIGRAM DAILY;
  2. PREMARIN [Concomitant]
     Active Substance: ESTROGENS, CONJUGATED
     Dosage: .9 MILLIGRAM DAILY;
  3. AZILECT [Suspect]
     Active Substance: RASAGILINE MESYLATE
     Indication: PARKINSON^S DISEASE
     Dates: start: 2012
  4. ZOMIG ZMT [Concomitant]
     Active Substance: ZOLMITRIPTAN
  5. DEPAKOTE ER [Concomitant]
     Active Substance: DIVALPROEX SODIUM
     Dosage: 250 MILLIGRAM DAILY;
  6. INTERMEZZO [Concomitant]
     Active Substance: ZOLPIDEM TARTRATE

REACTIONS (2)
  - Drug ineffective [Unknown]
  - Product odour abnormal [Unknown]

NARRATIVE: CASE EVENT DATE: 201606
